FAERS Safety Report 5467861-9 (Version None)
Quarter: 2007Q3

REPORT INFORMATION
  Report Type: 
  Country: None (occurrence: None)
  Receive Date: 20070926
  Receipt Date: 20070918
  Transmission Date: 20080115
  Serious: Yes (Death)
  Sender: FDA-Public Use
  Company Number: CA-JNJFOC-20070903913

PATIENT
  Sex: Female

DRUGS (1)
  1. CAELYX [Suspect]
     Indication: BREAST CANCER
     Dosage: 45MG/M2, 1ST CYCLE
     Route: 042

REACTIONS (1)
  - DEATH [None]
